FAERS Safety Report 7718672-2 (Version None)
Quarter: 2011Q4

REPORT INFORMATION
  Report Type: 
  Country: None (occurrence: None)
  Receive Date: 20110824
  Receipt Date: 20110809
  Transmission Date: 20120403
  Serious: No
  Sender: FDA-Public Use
  Company Number: B0740369A

PATIENT
  Age: 25 Year
  Sex: Male

DRUGS (4)
  1. LAMIVUDINE (EPIVIR HBV) [Suspect]
     Indication: CD4 LYMPHOCYTES DECREASED
  2. EFAVIRENZ [Suspect]
     Indication: CD4 LYMPHOCYTES DECREASED
  3. CANCER CHEMOTHERAPY [Concomitant]
  4. DIDANOSINE [Suspect]
     Indication: CD4 LYMPHOCYTES DECREASED

REACTIONS (8)
  - PYREXIA [None]
  - IMMUNE RECONSTITUTION SYNDROME [None]
  - CHYLOTHORAX [None]
  - LYMPHADENOPATHY [None]
  - BLOOD TRIGLYCERIDES INCREASED [None]
  - DYSPNOEA [None]
  - PLEURAL EFFUSION [None]
  - OSTEOLYSIS [None]
